FAERS Safety Report 6348275-6 (Version None)
Quarter: 2009Q3

REPORT INFORMATION
  Report Type: 
  Country: None (occurrence: None)
  Receive Date: 20090908
  Receipt Date: 20090902
  Transmission Date: 20100115
  Serious: Yes (Death, Other)
  Sender: FDA-Public Use
  Company Number: 2009SP023305

PATIENT
  Age: 53 Year
  Sex: Female

DRUGS (4)
  1. PEG-INTRON [Suspect]
     Indication: HEPATITIS C
     Dosage: 100 MCG; SC; 1000 MG; PO
     Route: 048
     Dates: start: 20090508
  2. PEG-INTRON [Suspect]
     Indication: HEPATITIS C
     Dosage: 100 MCG; SC; 1000 MG; PO
     Route: 048
     Dates: start: 20090508
  3. ALDACTONE [Concomitant]
  4. NADOLOL [Concomitant]

REACTIONS (4)
  - CONDITION AGGRAVATED [None]
  - HAEMOGLOBIN DECREASED [None]
  - HAEMORRHAGE [None]
  - PLATELET COUNT DECREASED [None]
